FAERS Safety Report 4809967-0 (Version None)
Quarter: 2005Q4

REPORT INFORMATION
  Report Type: 
  Country: None (occurrence: None)
  Receive Date: 20051024
  Receipt Date: 20051012
  Transmission Date: 20060501
  Serious: Yes (Hospitalization)
  Sender: FDA-Public Use
  Company Number: 2005-03926

PATIENT
  Age: 66 Year
  Sex: Male

DRUGS (1)
  1. FIORINAL W/CODEINE [Suspect]
     Indication: COUGH
     Dosage: 1 TABLET, SINGLE, ORAL
     Route: 048

REACTIONS (1)
  - PANCREATITIS ACUTE [None]
